FAERS Safety Report 21945290 (Version 1)
Quarter: 2023Q1

REPORT INFORMATION
  Report Type: Spontaneous
  Country: US (occurrence: None)
  Receive Date: 20230130
  Receipt Date: 20230130
  Transmission Date: 20230418
  Serious: Yes (Hospitalization)
  Sender: FDA-Public Use
  Company Number: None

PATIENT
  Age: 50 Year
  Sex: Male

DRUGS (1)
  1. ABIRATERONE [Suspect]
     Active Substance: ABIRATERONE
     Dosage: 1000MG DAILY ORAL
     Route: 048

REACTIONS (6)
  - Product availability issue [None]
  - Product dose omission issue [None]
  - Back pain [None]
  - Hypertension [None]
  - Prostate cancer [None]
  - Headache [None]

NARRATIVE: CASE EVENT DATE: 20230130
